FAERS Safety Report 9629678 (Version 1)
Quarter: 2013Q4

REPORT INFORMATION
  Report Type: Spontaneous
  Country: US (occurrence: US)
  Receive Date: 20131017
  Receipt Date: 20131017
  Transmission Date: 20140711
  Serious: No
  Sender: FDA-Public Use
  Company Number: US-BAYER-2013-126073

PATIENT
  Age: 86 Year
  Sex: Female
  Weight: 65.76 kg

DRUGS (1)
  1. ALEVE CAPLET [Suspect]
     Indication: ARTHRALGIA
     Dosage: 2 DF, ONCE
     Route: 048
     Dates: start: 20131015

REACTIONS (1)
  - Drug ineffective [None]
